FAERS Safety Report 6916238-5 (Version None)
Quarter: 2010Q3

REPORT INFORMATION
  Report Type: 
  Country: None (occurrence: None)
  Receive Date: 20100810
  Receipt Date: 20100804
  Transmission Date: 20110219
  Serious: No
  Sender: FDA-Public Use
  Company Number: 2009BI039553

PATIENT
  Age: 44 Year
  Sex: Female

DRUGS (2)
  1. TYSABRI [Suspect]
     Indication: MULTIPLE SCLEROSIS
     Route: 042
     Dates: start: 20080403, end: 20080728
  2. TYSABRI [Suspect]
     Route: 042
     Dates: start: 20090223

REACTIONS (2)
  - ROAD TRAFFIC ACCIDENT [None]
  - WHIPLASH INJURY [None]
